FAERS Safety Report 19694612 (Version 1)
Quarter: 2021Q3

REPORT INFORMATION
  Report Type: Spontaneous
  Country: JP (occurrence: JP)
  Receive Date: 20210812
  Receipt Date: 20210812
  Transmission Date: 20211014
  Serious: Yes (Hospitalization)
  Sender: FDA-Public Use
  Company Number: NVSJ2021JP011008

PATIENT
  Age: 80 Year
  Sex: Female

DRUGS (3)
  1. GLUBES [Concomitant]
     Active Substance: MITIGLINIDE CALCIUM HYDRATE\VOGLIBOSE
     Indication: PRODUCT USED FOR UNKNOWN INDICATION
     Dosage: UNK
     Route: 048
  2. EQUA TAB [Suspect]
     Active Substance: VILDAGLIPTIN
     Indication: TYPE 2 DIABETES MELLITUS
     Dosage: 100 MG
     Route: 048
     Dates: start: 2015, end: 2021
  3. EQUMET [Suspect]
     Active Substance: METFORMIN HYDROCHLORIDE\VILDAGLIPTIN
     Indication: TYPE 2 DIABETES MELLITUS
     Dosage: 1DF:METFORMIN HYDROCHLORIDE 250MG/ VILDAGLIPTIN 50MG,50 MG, BID
     Route: 048
     Dates: start: 2021

REACTIONS (9)
  - Oral mucosal roughening [Unknown]
  - Glossodynia [Unknown]
  - Oral candidiasis [Unknown]
  - Investigation abnormal [Unknown]
  - Tongue coated [Unknown]
  - Stomatitis [Unknown]
  - Dysphagia [Unknown]
  - Tongue dysplasia [Unknown]
  - Tongue polyp [Unknown]

NARRATIVE: CASE EVENT DATE: 201611
